FAERS Safety Report 19671914 (Version 3)
Quarter: 2022Q1

REPORT INFORMATION
  Report Type: Spontaneous
  Country: AU (occurrence: AU)
  Receive Date: 20210806
  Receipt Date: 20220310
  Transmission Date: 20220424
  Serious: Yes (Death, Hospitalization)
  Sender: FDA-Public Use
  Company Number: AU-BAXTER-2021BAX024453

PATIENT
  Age: 93 Year
  Sex: Male

DRUGS (11)
  1. DOXORUBICIN HYDROCHLORIDE [Suspect]
     Active Substance: DOXORUBICIN HYDROCHLORIDE
     Indication: Diffuse large B-cell lymphoma
     Dosage: 6 CYCLES (49 MG,1 IN 3 WK)
     Route: 042
     Dates: end: 202005
  2. CYCLOPHOSPHAMIDE [Suspect]
     Active Substance: CYCLOPHOSPHAMIDE
     Indication: Diffuse large B-cell lymphoma
     Dosage: 6 CYCLES (790 MG,1 IN 3 WK)
     Route: 042
  3. RITUXIMAB [Suspect]
     Active Substance: RITUXIMAB
     Indication: Diffuse large B-cell lymphoma
     Dosage: 6 CYCLES (740 MG,1 IN 3 WK)
     Route: 042
  4. ONCOVIN [Suspect]
     Active Substance: VINCRISTINE SULFATE
     Indication: Diffuse large B-cell lymphoma
     Dosage: 6 CYCLES (1 MG,1 IN 3 WK)
     Route: 042
     Dates: end: 202005
  5. PREDNISOLONE [Suspect]
     Active Substance: PREDNISOLONE
     Indication: Diffuse large B-cell lymphoma
     Dosage: DAY 1-5, 6 CYCLES (75 MG,1 IN 3 WK)
     Route: 065
  6. IRBESARTAN AND HYDROCHLOROTHIAZIDE [Concomitant]
     Active Substance: HYDROCHLOROTHIAZIDE\IRBESARTAN
     Indication: Hypertension
     Dosage: 150 MG/12.5 MG
     Route: 065
  7. AMLODIPINE [Concomitant]
     Active Substance: AMLODIPINE BESYLATE
     Indication: Hypertension
     Route: 065
  8. IBUPROFEN [Concomitant]
     Active Substance: IBUPROFEN
     Indication: Product used for unknown indication
     Route: 065
  9. ACETAMINOPHEN [Concomitant]
     Active Substance: ACETAMINOPHEN
     Indication: Premedication
     Route: 048
  10. PALONOSETRON [Concomitant]
     Active Substance: PALONOSETRON
     Indication: Product used for unknown indication
     Dosage: ON DAY 1 (250 MCG,1 IN 3 WK)
     Route: 042
  11. LORATADINE [Concomitant]
     Active Substance: LORATADINE
     Indication: Premedication
     Dosage: 0.4762 MG (10 MG,1 IN 3 WK)
     Route: 048

REACTIONS (4)
  - Hepatic failure [Fatal]
  - Hepatorenal syndrome [Fatal]
  - Hepatic encephalopathy [Fatal]
  - Hepatitis B reactivation [Unknown]
